FAERS Safety Report 6986094-8 (Version None)
Quarter: 2010Q3

REPORT INFORMATION
  Report Type: 
  Country: None (occurrence: None)
  Receive Date: 20100910
  Receipt Date: 20100825
  Transmission Date: 20110219
  Serious: Yes (Other)
  Sender: FDA-Public Use
  Company Number: 20100414

PATIENT
  Age: 43 Year
  Sex: Female

DRUGS (1)
  1. VENOFER [Suspect]
     Indication: ANAEMIA
     Dosage: 20 MG/ML, INTRAVENOUS
     Route: 042

REACTIONS (6)
  - EOSINOPHILIC FASCIITIS [None]
  - INFUSION SITE PHLEBITIS [None]
  - INFUSION SITE REACTION [None]
  - MUSCULOSKELETAL STIFFNESS [None]
  - SKIN FIBROSIS [None]
  - SKIN INDURATION [None]
